FAERS Safety Report 5552844-0 (Version None)
Quarter: 2007Q4

REPORT INFORMATION
  Report Type: 
  Country: None (occurrence: None)
  Receive Date: 20071210
  Receipt Date: 20071001
  Transmission Date: 20080405
  Serious: Yes (Hospitalization)
  Sender: FDA-Public Use
  Company Number: 2007S1009877

PATIENT
  Age: 81 Year
  Sex: Male

DRUGS (2)
  1. TERBINAFINE HYDROCHLORIDE [Suspect]
     Indication: TINEA PEDIS
     Dosage: DAILY
  2. ANTIFUNGALS (ANTIFUNGALS) [Concomitant]

REACTIONS (6)
  - ACRODERMATITIS [None]
  - ARTHRALGIA [None]
  - ARTHRITIS [None]
  - JOINT SWELLING [None]
  - NAIL DYSTROPHY [None]
  - PUSTULAR PSORIASIS [None]
